FAERS Safety Report 5128642-9 (Version None)
Quarter: 2006Q4

REPORT INFORMATION
  Report Type: 
  Country: None (occurrence: None)
  Receive Date: 20061011
  Receipt Date: 20060927
  Transmission Date: 20070319
  Serious: Yes (Hospitalization)
  Sender: FDA-Public Use
  Company Number: 230129

PATIENT
  Age: 57 Year
  Sex: Male
  Weight: 73.9 kg

DRUGS (3)
  1. AVASTIN [Suspect]
     Indication: NON-SMALL CELL LUNG CANCER
     Dosage: 1080 MG, Q3W, INTRAVENOUS
     Route: 042
     Dates: start: 20060817
  2. ALIMTA [Suspect]
     Indication: NON-SMALL CELL LUNG CANCER
     Dosage: 940 MG, Q3W,
     Dates: start: 20060817
  3. CARBOPLATIN [Suspect]
     Indication: NON-SMALL CELL LUNG CANCER
     Dosage: SEE IMAGE
     Dates: start: 20060817

REACTIONS (6)
  - ABSCESS INTESTINAL [None]
  - COLITIS [None]
  - DIVERTICULAR PERFORATION [None]
  - DIVERTICULITIS [None]
  - PERITONITIS [None]
  - PYREXIA [None]
